FAERS Safety Report 4628264-X (Version None)
Quarter: 2005Q2

REPORT INFORMATION
  Report Type: 
  Country: None (occurrence: None)
  Receive Date: 20050406
  Receipt Date: 20050324
  Transmission Date: 20051028
  Serious: Yes (Hospitalization)
  Sender: FDA-Public Use
  Company Number: PHEH2005US03576

PATIENT
  Age: 59 Year
  Sex: Male

DRUGS (4)
  1. ZOMETA [Suspect]
     Indication: METASTASES TO BONE
     Dosage: UNK QMO
     Dates: start: 20040901, end: 20041201
  2. LUPRON [Concomitant]
  3. CASODEX [Concomitant]
  4. CELEBREX [Concomitant]

REACTIONS (3)
  - INFLUENZA LIKE ILLNESS [None]
  - NEPHROLITHIASIS [None]
  - RENAL STONE REMOVAL [None]
